FAERS Safety Report 22360748 (Version 1)
Quarter: 2023Q2

REPORT INFORMATION
  Report Type: Spontaneous
  Country: US (occurrence: US)
  Receive Date: 20230524
  Receipt Date: 20230524
  Transmission Date: 20230722
  Serious: No
  Sender: FDA-Public Use
  Company Number: US-drreddys-SPO/USA/23/0164259

PATIENT
  Age: 76 Year
  Sex: Female

DRUGS (1)
  1. BUPRENORPHINE HYDROCHLORIDE AND NALOXONE HYDROCHLORIDE [Suspect]
     Active Substance: BUPRENORPHINE HYDROCHLORIDE\NALOXONE HYDROCHLORIDE
     Indication: Product used for unknown indication
     Dosage: 4MG/1MG
     Route: 060
     Dates: start: 20230406, end: 20230417

REACTIONS (5)
  - Hyperhidrosis [Unknown]
  - Drug withdrawal syndrome [Unknown]
  - Palpitations [Unknown]
  - Asthenia [Unknown]
  - Insomnia [Unknown]
